FAERS Safety Report 25488627 (Version 3)
Quarter: 2025Q3

REPORT INFORMATION
  Report Type: Spontaneous
  Country: US (occurrence: US)
  Receive Date: 20250627
  Receipt Date: 20250722
  Transmission Date: 20251021
  Serious: No
  Sender: PFIZER
  Company Number: US-PFIZER INC-PV202500076926

PATIENT
  Age: 51 Year
  Sex: Male
  Weight: 94.059 kg

DRUGS (2)
  1. INLYTA [Suspect]
     Active Substance: AXITINIB
     Dosage: 5 MG, 2X/DAY
     Route: 048
     Dates: start: 20250529
  2. PEMBROLIZUMAB [Concomitant]
     Active Substance: PEMBROLIZUMAB
     Route: 042

REACTIONS (5)
  - Oral infection [Unknown]
  - Abdominal discomfort [Unknown]
  - Dysphonia [Unknown]
  - Fatigue [Unknown]
  - Diarrhoea [Unknown]
